FAERS Safety Report 25396429 (Version 1)
Quarter: 2025Q2

REPORT INFORMATION
  Report Type: Spontaneous
  Country: US (occurrence: None)
  Receive Date: 20250603
  Receipt Date: 20250603
  Transmission Date: 20250716
  Serious: Yes (Hospitalization, Other)
  Sender: FDA-CTU
  Company Number: None

PATIENT
  Age: 35 Year
  Sex: Female
  Weight: 108.9 kg

DRUGS (1)
  1. SEMAGLUTIDE [Suspect]
     Active Substance: SEMAGLUTIDE
     Indication: Obesity
     Dates: start: 20240401, end: 20250401

REACTIONS (2)
  - Fatigue [None]
  - Tubulointerstitial nephritis [None]

NARRATIVE: CASE EVENT DATE: 20250527
